FAERS Safety Report 6300648-3 (Version None)
Quarter: 2009Q3

REPORT INFORMATION
  Report Type: 
  Country: None (occurrence: None)
  Receive Date: 20090803
  Receipt Date: 20090720
  Transmission Date: 20100115
  Serious: Yes (Hospitalization)
  Sender: FDA-Public Use
  Company Number: ADR7582009

PATIENT
  Age: 72 Year
  Sex: Male

DRUGS (12)
  1. CIPROFLOXAIN [Suspect]
     Indication: CHEMOTHERAPY
     Dates: start: 20070622, end: 20071116
  2. ALENDRONATE SODIUM [Concomitant]
  3. FLUCANOZOLE [Concomitant]
  4. ONDANSETRON [Concomitant]
  5. ACYCLOVIR [Concomitant]
  6. ALLOPURINOL [Concomitant]
  7. COTRIM [Concomitant]
  8. CYCLOPHOSPHAMIDE [Concomitant]
  9. LANSOPRAZOLE [Concomitant]
  10. PREDNISOLONE [Concomitant]
  11. RITUXIMAB [Concomitant]
  12. VINCRISTINE (UNKNOWN STRENGTHS) [Concomitant]

REACTIONS (1)
  - TOXIC SKIN ERUPTION [None]
